FAERS Safety Report 17845358 (Version 2)
Quarter: 2020Q2

REPORT INFORMATION
  Report Type: Spontaneous
  Country: JP (occurrence: JP)
  Receive Date: 20200601
  Receipt Date: 20200608
  Transmission Date: 20200714
  Serious: Yes (Other)
  Sender: FDA-Public Use
  Company Number: JP-ASTELLAS-2020JP007299

PATIENT
  Age: 38 Year
  Sex: Male

DRUGS (2)
  1. XOSPATA [Suspect]
     Active Substance: GILTERITINIB
     Indication: ACUTE MYELOID LEUKAEMIA RECURRENT
     Dosage: 120 MG/DAY, UNKNOWN FREQ.
     Route: 048
     Dates: start: 20190109
  2. XOSPATA [Suspect]
     Active Substance: GILTERITINIB
     Dosage: 80 MG/DAY, UNKNOWN FREQ.
     Route: 048

REACTIONS (2)
  - Neuropathy peripheral [Recovered/Resolved]
  - Liver disorder [Recovered/Resolved]
